FAERS Safety Report 8160277-6 (Version None)
Quarter: 2012Q1

REPORT INFORMATION
  Report Type: 
  Country: None (occurrence: None)
  Receive Date: 20120223
  Receipt Date: 20120223
  Transmission Date: 20120608
  Serious: Yes (Other)
  Sender: FDA-Public Use
  Company Number: None

PATIENT
  Age: 27 Year
  Sex: Male
  Weight: 60.781 kg

DRUGS (1)
  1. VIIBRYD [Suspect]
     Indication: ANXIETY
     Dosage: 40 MG
     Route: 048
     Dates: start: 20120220, end: 20120221

REACTIONS (5)
  - ABDOMINAL PAIN [None]
  - DIARRHOEA [None]
  - HYPERHIDROSIS [None]
  - DIZZINESS [None]
  - NAUSEA [None]
